FAERS Safety Report 9961542 (Version 1)
Quarter: 2014Q1

REPORT INFORMATION
  Report Type: Spontaneous
  Country: US (occurrence: US)
  Receive Date: 20140305
  Receipt Date: 20140305
  Transmission Date: 20141002
  Serious: Yes (Other)
  Sender: FDA-Public Use
  Company Number: US-SA-2014SA026129

PATIENT
  Age: 52 Year
  Sex: Female
  Weight: 68 kg

DRUGS (15)
  1. TAXOTERE [Suspect]
     Indication: BREAST CANCER
  2. TAXOTERE [Suspect]
     Indication: ANXIETY
  3. INFLIXIMAB [Suspect]
     Indication: COLITIS ULCERATIVE
     Route: 065
     Dates: start: 20100410
  4. INFLIXIMAB [Suspect]
     Indication: COLITIS ULCERATIVE
     Route: 065
  5. ADRIAMYCIN [Suspect]
     Indication: BREAST CANCER
  6. CYTOXAN [Suspect]
     Indication: BREAST CANCER
     Route: 065
  7. CYTOXAN [Suspect]
     Indication: NEUROPATHY PERIPHERAL
     Route: 065
  8. PACLITAXEL [Suspect]
     Indication: BREAST CANCER
     Route: 065
  9. ATENOLOL [Concomitant]
     Indication: PALPITATIONS
     Route: 048
  10. COLAZAL [Concomitant]
     Indication: COLITIS ULCERATIVE
     Route: 048
  11. GEMFIBROZIL [Concomitant]
     Indication: HYPERTRIGLYCERIDAEMIA
     Route: 048
  12. COLECALCIFEROL [Concomitant]
     Route: 048
  13. PARACETAMOL [Concomitant]
     Route: 048
  14. LORAZEPAM [Concomitant]
     Indication: SLEEP DISORDER
     Route: 048
  15. ESTRADIOL [Concomitant]
     Route: 048

REACTIONS (6)
  - Invasive ductal breast carcinoma [Unknown]
  - Depression [Unknown]
  - Anxiety [Unknown]
  - Neuropathy peripheral [Unknown]
  - Diarrhoea [Unknown]
  - Drug ineffective [Recovered/Resolved]
